FAERS Safety Report 6877098-4 (Version None)
Quarter: 2010Q3

REPORT INFORMATION
  Report Type: 
  Country: None (occurrence: None)
  Receive Date: 20100727
  Receipt Date: 20100713
  Transmission Date: 20110219
  Serious: Yes (Hospitalization)
  Sender: FDA-Public Use
  Company Number: FR-WATSON-2010-09272

PATIENT
  Age: 30 Year
  Sex: Female

DRUGS (1)
  1. ACYCLOVIR [Suspect]
     Indication: MENINGITIS
     Dosage: 15 MG/KG, Q8H
     Route: 042

REACTIONS (1)
  - RENAL FAILURE ACUTE [None]
